FAERS Safety Report 20746486 (Version 6)
Quarter: 2025Q3

REPORT INFORMATION
  Report Type: Spontaneous
  Country: US (occurrence: US)
  Receive Date: 20220425
  Receipt Date: 20250721
  Transmission Date: 20251021
  Serious: Yes (Other)
  Sender: PFIZER
  Company Number: US-PFIZER INC-202200239306

PATIENT
  Age: 73 Year
  Sex: Female

DRUGS (6)
  1. IBRANCE [Suspect]
     Active Substance: PALBOCICLIB
     Indication: Breast cancer female
     Dates: start: 20210111
  2. IBRANCE [Suspect]
     Active Substance: PALBOCICLIB
     Dates: start: 20210329
  3. IBRANCE [Suspect]
     Active Substance: PALBOCICLIB
     Dates: start: 20210401
  4. IBRANCE [Suspect]
     Active Substance: PALBOCICLIB
     Dates: start: 20210430, end: 20220202
  5. IBRANCE [Suspect]
     Active Substance: PALBOCICLIB
  6. FULVESTRANT [Suspect]
     Active Substance: FULVESTRANT
     Indication: Breast cancer female

REACTIONS (11)
  - Neuropathy peripheral [Unknown]
  - Malignant neoplasm progression [Unknown]
  - Breast cancer female [Unknown]
  - Spinal operation [Unknown]
  - Pain [Unknown]
  - Muscular weakness [Unknown]
  - Full blood count decreased [Unknown]
  - Decreased appetite [Unknown]
  - Asthenia [Unknown]
  - COVID-19 [Unknown]
  - Nausea [Unknown]

NARRATIVE: CASE EVENT DATE: 20220131
